FAERS Safety Report 9274530 (Version 1)
Quarter: 2013Q2

REPORT INFORMATION
  Report Type: Spontaneous
  Country: US (occurrence: US)
  Receive Date: 20130507
  Receipt Date: 20130507
  Transmission Date: 20140414
  Serious: No
  Sender: FDA-Public Use
  Company Number: US-009507513-1305USA002432

PATIENT
  Age: 8 Year
  Sex: Female
  Weight: 29.48 kg

DRUGS (2)
  1. CLARITIN ORAL SOLUTION [Suspect]
     Indication: HYPERSENSITIVITY
     Dosage: 20 MG, ONCE
     Route: 048
  2. CLARITIN ORAL SOLUTION [Suspect]
     Dosage: 10 MG, QD
     Route: 048

REACTIONS (1)
  - Accidental overdose [Unknown]
